FAERS Safety Report 7785778-1 (Version None)
Quarter: 2011Q3

REPORT INFORMATION
  Report Type: 
  Country: None (occurrence: None)
  Receive Date: 20110929
  Receipt Date: 20110926
  Transmission Date: 20111222
  Serious: Yes (Hospitalization)
  Sender: FDA-Public Use
  Company Number: US-BRISTOL-MYERS SQUIBB COMPANY-16096596

PATIENT
  Age: 57 Year
  Sex: Female
  Weight: 85 kg

DRUGS (15)
  1. VALTREX [Concomitant]
  2. NOVOLOG [Concomitant]
  3. NORVIR [Concomitant]
  4. PROAIR HFA [Concomitant]
  5. LANTUS [Concomitant]
  6. CALCIUM CARBONATE [Concomitant]
  7. FLOMAX [Concomitant]
  8. RAMIPRIL [Concomitant]
  9. PRISTIQ [Concomitant]
  10. VITAMIN D [Concomitant]
  11. REYATAZ [Suspect]
     Indication: HIV INFECTION
     Dates: start: 20090901, end: 20110926
  12. ANTARA (MICRONIZED) [Concomitant]
  13. AMBIEN [Concomitant]
  14. EPZICOM [Concomitant]
  15. ALLEGRA [Concomitant]

REACTIONS (4)
  - DIARRHOEA [None]
  - NEPHROLITHIASIS [None]
  - BACK PAIN [None]
  - PNEUMONIA [None]
